FAERS Safety Report 6963595 (Version 13)
Quarter: 2012Q4

REPORT INFORMATION
  Report Type: 
  Country: US (occurrence: US)
  Receive Date: 20090408
  Receipt Date: 20121226
  Transmission Date: 20130627
  Serious: Yes (Death, Hospitalization, Other)
  Sender: FDA-Public Use
  Company Number: PHEH2009US03380

PATIENT
  Sex: Female

DRUGS (15)
  1. ZOMETA [Suspect]
     Dosage: 4 mg, UNK
     Route: 042
     Dates: end: 20080104
  2. COUMADIN ^BOOTS^ [Suspect]
  3. COUMADIN ^DUPONT^ [Suspect]
  4. AVASTIN [Concomitant]
  5. ACTONEL [Concomitant]
  6. PENICILLIN ^GRUNENTHAL^ [Concomitant]
  7. TAXOTERE [Concomitant]
  8. DECADRON #1 [Concomitant]
  9. LIPITOR [Concomitant]
     Indication: BLOOD CHOLESTEROL INCREASED
  10. FOLIC ACID [Concomitant]
  11. CALCIUM [Concomitant]
  12. MULTIVIT [Concomitant]
  13. ZETIA [Concomitant]
  14. TRICOR [Concomitant]
  15. FOSAMAX [Concomitant]

REACTIONS (75)
  - Death [Fatal]
  - Osteonecrosis of jaw [Unknown]
  - Injury [Unknown]
  - Pain [Unknown]
  - Anxiety [Unknown]
  - Anhedonia [Unknown]
  - Disability [Unknown]
  - Metastases to lymph nodes [Unknown]
  - Embolism [Unknown]
  - Metastases to central nervous system [Unknown]
  - Thrombosis [Unknown]
  - Deep vein thrombosis [Unknown]
  - Asthenia [Unknown]
  - Hiatus hernia [Unknown]
  - Haemorrhoids [Unknown]
  - Diverticulum intestinal [Unknown]
  - Metastases to bone [Unknown]
  - Renal cyst [Unknown]
  - Aortic arteriosclerosis [Unknown]
  - Metastases to liver [Unknown]
  - Pericardial calcification [Unknown]
  - Thoracic vertebral fracture [Unknown]
  - Hilar lymphadenopathy [Unknown]
  - Iron deficiency anaemia [Unknown]
  - Emphysema [Unknown]
  - Fatigue [Unknown]
  - Feeling cold [Unknown]
  - Pyrexia [Unknown]
  - Hyperhidrosis [Unknown]
  - Insomnia [Unknown]
  - Cough [Unknown]
  - Hypoaesthesia [Unknown]
  - Blood urine present [Unknown]
  - Cyst [Unknown]
  - Rash [Unknown]
  - Nasal congestion [Unknown]
  - Metastases to spine [Unknown]
  - Dizziness [Unknown]
  - Tooth infection [Unknown]
  - Loss of consciousness [Unknown]
  - Tooth abscess [Unknown]
  - Adrenal disorder [Unknown]
  - Liver scan abnormal [Unknown]
  - Lymphadenopathy mediastinal [Unknown]
  - Hepatic mass [Unknown]
  - Colitis [Unknown]
  - Compression fracture [Unknown]
  - Odynophagia [Unknown]
  - Vena cava thrombosis [Unknown]
  - Thyroid neoplasm [Unknown]
  - Bladder disorder [Unknown]
  - Chest pain [Unknown]
  - Syncope [Unknown]
  - Dyspnoea [Unknown]
  - Superior vena cava syndrome [Unknown]
  - Dementia [Unknown]
  - Mental status changes [Unknown]
  - Coagulopathy [Unknown]
  - Subdural haematoma [Unknown]
  - Fall [Unknown]
  - Hypotension [Unknown]
  - Hemiparesis [Unknown]
  - VIIth nerve paralysis [Unknown]
  - Jaw fracture [Unknown]
  - Hyperlipidaemia [Unknown]
  - Lethargy [Unknown]
  - Convulsion [Unknown]
  - Hyperglycaemia [Unknown]
  - Back pain [Unknown]
  - Exostosis [Unknown]
  - Bursitis [Unknown]
  - Spinal osteoarthritis [Unknown]
  - Rib fracture [Unknown]
  - Mastication disorder [Unknown]
  - Pilonidal cyst [Unknown]
